FAERS Safety Report 6151236-3 (Version None)
Quarter: 2009Q2

REPORT INFORMATION
  Report Type: 
  Country: None (occurrence: None)
  Receive Date: 20090410
  Receipt Date: 20090408
  Transmission Date: 20091009
  Serious: Yes (Life-Threatening, Other)
  Sender: FDA-Public Use
  Company Number: FR-BRISTOL-MYERS SQUIBB COMPANY-14578785

PATIENT
  Age: 25 Year
  Sex: Male

DRUGS (2)
  1. SPRYCEL [Suspect]
     Indication: SYSTEMIC MASTOCYTOSIS
     Route: 048
  2. VERCYTE [Concomitant]

REACTIONS (4)
  - ANGIOEDEMA [None]
  - BRONCHOSPASM [None]
  - ERYTHEMA [None]
  - HYPOTENSION [None]
